FAERS Safety Report 16170783 (Version 1)
Quarter: 2019Q2

REPORT INFORMATION
  Report Type: Spontaneous
  Country: LT (occurrence: LT)
  Receive Date: 20190408
  Receipt Date: 20190408
  Transmission Date: 20190711
  Serious: Yes (Hospitalization)
  Sender: FDA-Public Use
  Company Number: LT-TEVA-2019-LT-1034114

PATIENT
  Age: 45 Year
  Sex: Male
  Weight: 90 kg

DRUGS (8)
  1. ASPIRIN. [Concomitant]
     Active Substance: ASPIRIN
  2. ATORVASTATIN [Concomitant]
     Active Substance: ATORVASTATIN
  3. TRESIBA [Concomitant]
     Active Substance: INSULIN DEGLUDEC
  4. ALLOPURINOL. [Suspect]
     Active Substance: ALLOPURINOL
     Indication: GOUT
     Dates: start: 201902
  5. VALSARTAN. [Concomitant]
     Active Substance: VALSARTAN
  6. FIASP [Concomitant]
     Active Substance: INSULIN ASPART
  7. NEBIVOLOL 5 MG [Concomitant]
     Active Substance: NEBIVOLOL
  8. CLOPIDOGREL 75 G [Concomitant]

REACTIONS (1)
  - Wound [Not Recovered/Not Resolved]

NARRATIVE: CASE EVENT DATE: 20190303
